FAERS Safety Report 7859793-3 (Version None)
Quarter: 2011Q4

REPORT INFORMATION
  Report Type: 
  Country: None (occurrence: None)
  Receive Date: 20111027
  Receipt Date: 20111020
  Transmission Date: 20120403
  Serious: Yes (Other)
  Sender: FDA-Public Use
  Company Number: GB-PFIZER INC-2011223811

PATIENT
  Age: 24 Year
  Sex: Female
  Weight: 50.8 kg

DRUGS (1)
  1. DEPO-PROVERA [Suspect]
     Indication: CONTRACEPTION
     Dosage: 1 DF, EVERY 3 MONTHS
     Route: 063
     Dates: start: 19770501, end: 19780501

REACTIONS (2)
  - EXPOSURE DURING BREAST FEEDING [None]
  - INFERTILITY [None]
